FAERS Safety Report 6566732-4 (Version None)
Quarter: 2010Q1

REPORT INFORMATION
  Report Type: 
  Country: None (occurrence: None)
  Receive Date: 20100202
  Receipt Date: 20100128
  Transmission Date: 20100710
  Serious: Yes (Death, Life-Threatening)
  Sender: FDA-Public Use
  Company Number: US-ROXANE LABORATORIES, INC.-2010-RO-00110RO

PATIENT
  Age: 40 Year
  Sex: Male

DRUGS (1)
  1. HYDROMORPHONE HYDROCHLORIDE [Suspect]
     Indication: OROPHARYNGEAL PAIN
     Route: 042

REACTIONS (4)
  - DRUG PRESCRIBING ERROR [None]
  - INCORRECT DOSE ADMINISTERED [None]
  - NERVOUS SYSTEM DISORDER [None]
  - RESPIRATORY ARREST [None]
